FAERS Safety Report 8904364 (Version 7)
Quarter: 2014Q3

REPORT INFORMATION
  Report Type: Spontaneous
  Country: US (occurrence: US)
  Receive Date: 20121112
  Receipt Date: 20140923
  Transmission Date: 20150326
  Serious: Yes (Disabling)
  Sender: FDA-Public Use
  Company Number: US-009507513-1211USA004418

PATIENT
  Sex: Male

DRUGS (8)
  1. SIMVASTATIN. [Concomitant]
     Active Substance: SIMVASTATIN
     Indication: BLOOD CHOLESTEROL INCREASED
     Dosage: UNK
     Dates: start: 200201
  2. LOVASTATIN. [Concomitant]
     Active Substance: LOVASTATIN
     Indication: BLOOD CHOLESTEROL INCREASED
     Dosage: UNK
     Dates: start: 200501
  3. ZANTAC [Concomitant]
     Active Substance: RANITIDINE HYDROCHLORIDE
     Dosage: UNK
     Dates: start: 198909
  4. TRIAZOLAM. [Concomitant]
     Active Substance: TRIAZOLAM
     Indication: SLEEP DISORDER
     Dosage: UNK
     Dates: start: 198909
  5. LISINOPRIL. [Concomitant]
     Active Substance: LISINOPRIL
     Indication: HYPERTENSION
     Dosage: 5 MG, UNK
     Dates: start: 200501
  6. FINASTERIDE. [Suspect]
     Active Substance: FINASTERIDE
     Dosage: 5MG, 1/2 TABLET (2.5 MG)  QD
     Route: 048
     Dates: start: 20111220
  7. ACETAMINOPHEN (+) HYDROCODONE BITARTRATE [Concomitant]
     Active Substance: ACETAMINOPHEN\HYDROCODONE
     Indication: NECK PAIN
     Dosage: UNK
     Dates: start: 198909
  8. PROPECIA [Suspect]
     Active Substance: FINASTERIDE
     Indication: ALOPECIA
     Dosage: 1 MG, QD
     Route: 048
     Dates: start: 20060127, end: 20120713

REACTIONS (18)
  - Cardiac murmur [Unknown]
  - Anxiety [Not Recovered/Not Resolved]
  - Hyperphagia [Unknown]
  - Back pain [Not Recovered/Not Resolved]
  - Depression [Not Recovered/Not Resolved]
  - Drug administration error [Unknown]
  - Sexual dysfunction [Unknown]
  - Weight decreased [Unknown]
  - Erectile dysfunction [Unknown]
  - Gastrooesophageal reflux disease [Unknown]
  - Chest pain [Not Recovered/Not Resolved]
  - Dizziness [Unknown]
  - Benign prostatic hyperplasia [Unknown]
  - Libido decreased [Unknown]
  - Urinary tract obstruction [Unknown]
  - Palpitations [Not Recovered/Not Resolved]
  - Fatigue [Unknown]
  - Wrong technique in drug usage process [Unknown]

NARRATIVE: CASE EVENT DATE: 20060201
